FAERS Safety Report 24567148 (Version 2)
Quarter: 2024Q4

REPORT INFORMATION
  Report Type: Report from Study
  Country: US (occurrence: US)
  Receive Date: 20241030
  Receipt Date: 20241205
  Transmission Date: 20250115
  Serious: Yes (Other)
  Sender: TAIHO ONCOLOGY INC
  Company Number: US-TAIHOP-2024_024995

PATIENT
  Age: 82 Year
  Sex: Male

DRUGS (13)
  1. INQOVI [Suspect]
     Active Substance: CEDAZURIDINE\DECITABINE
     Indication: Chronic myelomonocytic leukaemia
     Dosage: CYCLE 1; FORM STRENGTH: 35-100 MG (35 MG DECITABINE + 100 MG CEDAZURIDINE)
     Route: 048
     Dates: start: 20220727
  2. ACETAMINOPHE [Concomitant]
     Indication: Product used for unknown indication
     Dosage: ER
  3. CARDURA [Concomitant]
     Active Substance: DOXAZOSIN MESYLATE
     Indication: Product used for unknown indication
  4. DILTIAZEM [Concomitant]
     Active Substance: DILTIAZEM
     Indication: Product used for unknown indication
  5. FUROSEMIDE [Concomitant]
     Active Substance: FUROSEMIDE
     Indication: Product used for unknown indication
  6. METAMUCIL ORG [Concomitant]
     Indication: Product used for unknown indication
     Dosage: POW
  7. METOPROLOL TARTRATE [Concomitant]
     Active Substance: METOPROLOL TARTRATE
     Indication: Product used for unknown indication
     Dosage: POW
  8. NITROGLYCERN [Concomitant]
     Indication: Product used for unknown indication
     Dosage: SUB
  9. PANTOPRAZOLE [Concomitant]
     Active Substance: PANTOPRAZOLE
     Indication: Product used for unknown indication
     Dosage: SUB
  10. PHENOBARBITAL SODIUM [Concomitant]
     Active Substance: PHENOBARBITAL SODIUM
     Indication: Product used for unknown indication
     Dosage: SUB
  11. PREGABALIN [Concomitant]
     Active Substance: PREGABALIN
     Indication: Product used for unknown indication
  12. PROSCAR [Concomitant]
     Active Substance: FINASTERIDE
     Indication: Product used for unknown indication
  13. WARFARIN [Concomitant]
     Active Substance: WARFARIN
     Indication: Product used for unknown indication

REACTIONS (5)
  - Diverticulitis [Unknown]
  - Inappropriate schedule of product administration [Unknown]
  - Inguinal hernia [Unknown]
  - Cytopenia [Not Recovered/Not Resolved]
  - Platelet count decreased [Not Recovered/Not Resolved]

NARRATIVE: CASE EVENT DATE: 20220727
